FAERS Safety Report 8551202-4 (Version None)
Quarter: 2012Q3

REPORT INFORMATION
  Report Type: 
  Country: None (occurrence: None)
  Receive Date: 20120730
  Receipt Date: 20120719
  Transmission Date: 20120928
  Serious: Yes (Hospitalization)
  Sender: FDA-Public Use
  Company Number: CA-ELI_LILLY_AND_COMPANY-CA201207006507

PATIENT
  Age: 89 Year
  Sex: Female

DRUGS (1)
  1. FORTEO [Suspect]
     Indication: OSTEOPOROSIS
     Dosage: 20 MG, QD
     Route: 058
     Dates: start: 20120116

REACTIONS (3)
  - VIRAL INFECTION [None]
  - RESPIRATORY TRACT INFECTION VIRAL [None]
  - ASTHMA [None]
